FAERS Safety Report 8363281-8 (Version None)
Quarter: 2012Q2

REPORT INFORMATION
  Report Type: 
  Country: None (occurrence: None)
  Receive Date: 20120516
  Receipt Date: 20111208
  Transmission Date: 20120825
  Serious: Yes (Hospitalization)
  Sender: FDA-Public Use
  Company Number: US-ALEXION-A201101817

PATIENT
  Sex: Male

DRUGS (7)
  1. VANCOMYCIN [Suspect]
     Dosage: UNK
     Dates: start: 20111101, end: 20111101
  2. VALACICLOVIR [Concomitant]
     Dosage: UNK
  3. SOLIRIS [Suspect]
     Dosage: 900 MG, Q2W
     Route: 042
     Dates: start: 20101101, end: 20111102
  4. SOLIRIS [Suspect]
     Indication: PAROXYSMAL NOCTURNAL HAEMOGLOBINURIA
     Dosage: 600 MG, QW
     Route: 042
     Dates: start: 20101019, end: 20101101
  5. FOLIC ACID [Concomitant]
     Dosage: UNK
  6. VITAMIN D [Concomitant]
     Dosage: UNK
  7. CALCIUM [Concomitant]
     Dosage: UNK

REACTIONS (8)
  - NEUTROPENIA [None]
  - APLASTIC ANAEMIA [None]
  - PANCYTOPENIA [None]
  - SERUM FERRITIN INCREASED [None]
  - RASH [None]
  - CONDITION AGGRAVATED [None]
  - BLOOD COUNT ABNORMAL [None]
  - PYREXIA [None]
